FAERS Safety Report 24696208 (Version 7)
Quarter: 2025Q2

REPORT INFORMATION
  Report Type: Spontaneous
  Country: US (occurrence: US)
  Receive Date: 20241204
  Receipt Date: 20250422
  Transmission Date: 20250716
  Serious: Yes (Hospitalization)
  Sender: IPSEN BIOPHARMACEUTICALS, INC.
  Company Number: US-IPSEN Group, Research and Development-2024-24118

PATIENT
  Age: 58 Year
  Sex: Female

DRUGS (9)
  1. IQIRVO [Suspect]
     Active Substance: ELAFIBRANOR
     Indication: Primary biliary cholangitis
     Route: 048
  2. AMOXICILLIN\CLAVULANIC ACID [Suspect]
     Active Substance: AMOXICILLIN\CLAVULANIC ACID
     Indication: Product used for unknown indication
     Route: 065
  3. FOLIC ACID [Concomitant]
     Active Substance: FOLIC ACID
  4. OCALIVA [Concomitant]
     Active Substance: OBETICHOLIC ACID
  5. LISINOPRIL [Concomitant]
     Active Substance: LISINOPRIL
  6. VITAMIN D3 [Concomitant]
     Active Substance: CHOLECALCIFEROL
  7. URSODIOL [Concomitant]
     Active Substance: URSODIOL
  8. AMOXICILLIN/CLAVULANATE P [Concomitant]
  9. VITAMIN B12 [Concomitant]
     Active Substance: CYANOCOBALAMIN

REACTIONS (12)
  - Respiratory syncytial virus infection [Recovering/Resolving]
  - Diarrhoea [Unknown]
  - Constipation [Unknown]
  - Nasopharyngitis [Unknown]
  - Influenza [Unknown]
  - Abdominal pain upper [Unknown]
  - Skin wrinkling [Unknown]
  - Abdominal pain lower [Unknown]
  - Gastroenteritis [Unknown]
  - Flatulence [Unknown]
  - Ear discomfort [Unknown]
  - Product dose omission issue [Unknown]

NARRATIVE: CASE EVENT DATE: 20250318
